FAERS Safety Report 17192063 (Version 2)
Quarter: 2020Q1

REPORT INFORMATION
  Report Type: Spontaneous
  Country: US (occurrence: US)
  Receive Date: 20191223
  Receipt Date: 20200226
  Transmission Date: 20200409
  Serious: Yes (Hospitalization)
  Sender: FDA-Public Use
  Company Number: US-BIOGEN-2019BI00818403

PATIENT
  Age: 59 Year
  Sex: Female

DRUGS (1)
  1. TYSABRI [Suspect]
     Active Substance: NATALIZUMAB
     Indication: MULTIPLE SCLEROSIS
     Route: 065
     Dates: start: 20121019, end: 20190830

REACTIONS (4)
  - Multiple sclerosis [Unknown]
  - Fall [Recovered/Resolved]
  - Hip fracture [Unknown]
  - Gait inability [Unknown]

NARRATIVE: CASE EVENT DATE: 201801
